FAERS Safety Report 12056631 (Version 3)
Quarter: 2016Q2

REPORT INFORMATION
  Report Type: Spontaneous
  Country: PT (occurrence: PT)
  Receive Date: 20160210
  Receipt Date: 20160429
  Transmission Date: 20160815
  Serious: Yes (Other)
  Sender: FDA-Public Use
  Company Number: PT-ROCHE-1707325

PATIENT
  Age: 70 Year
  Sex: Female
  Weight: 67 kg

DRUGS (2)
  1. BONVIVA [Suspect]
     Active Substance: IBANDRONATE SODIUM
     Indication: OSTEOPOROSIS
     Route: 048
     Dates: start: 20151130, end: 20160130
  2. UNISEDIL [Concomitant]
     Active Substance: DIAZEPAM
     Dosage: 1 TABLET ON MORNIG + 1 TABLET AT NIGHT
     Route: 048

REACTIONS (5)
  - Toothache [Recovering/Resolving]
  - Hair growth abnormal [Not Recovered/Not Resolved]
  - Sensitivity of teeth [Recovering/Resolving]
  - Hair disorder [Not Recovered/Not Resolved]
  - Arthralgia [Recovering/Resolving]

NARRATIVE: CASE EVENT DATE: 201601
